FAERS Safety Report 11279405 (Version 1)
Quarter: 2015Q3

REPORT INFORMATION
  Report Type: Spontaneous
  Country: US (occurrence: US)
  Receive Date: 20150717
  Receipt Date: 20150717
  Transmission Date: 20151125
  Serious: No
  Sender: FDA-Public Use
  Company Number: US-ASTRAZENECA-2015SE61600

PATIENT
  Sex: Male

DRUGS (7)
  1. LATUDA [Concomitant]
     Active Substance: LURASIDONE HYDROCHLORIDE
  2. LITHIUM CARBONATE. [Concomitant]
     Active Substance: LITHIUM CARBONATE
     Indication: MENTAL DISORDER
     Route: 065
  3. THYRODIZENE [Concomitant]
     Indication: THYROID DISORDER
  4. DIVALPROEX [Concomitant]
     Active Substance: DIVALPROEX SODIUM
     Indication: MENTAL DISORDER
  5. SEROQUEL [Suspect]
     Active Substance: QUETIAPINE FUMARATE
     Route: 048
     Dates: start: 2013
  6. HYDROCORTISONE. [Concomitant]
     Active Substance: HYDROCORTISONE
     Indication: ADRENOGENITAL SYNDROME
  7. FLUDROCORTISONE [Concomitant]
     Active Substance: FLUDROCORTISONE
     Indication: ADRENOGENITAL SYNDROME

REACTIONS (8)
  - Activities of daily living impaired [Unknown]
  - Thyroid disorder [Unknown]
  - Dysgraphia [Unknown]
  - Reading disorder [Unknown]
  - Mental disorder [Unknown]
  - Speech disorder [Unknown]
  - Memory impairment [Unknown]
  - Weight increased [Unknown]
